FAERS Safety Report 5803248-4 (Version None)
Quarter: 2008Q3

REPORT INFORMATION
  Report Type: 
  Country: None (occurrence: None)
  Receive Date: 20080708
  Receipt Date: 20080627
  Transmission Date: 20090109
  Serious: Yes (Hospitalization)
  Sender: FDA-Public Use
  Company Number: FR-GENENTECH-262049

PATIENT
  Age: 23 Year
  Sex: Female

DRUGS (3)
  1. MABTHERA [Suspect]
     Indication: THROMBOCYTOPENIC PURPURA
     Dosage: 1 G, UNK
     Dates: start: 20080314, end: 20080328
  2. CORTANCYL [Concomitant]
     Indication: DRUG USE FOR UNKNOWN INDICATION
  3. PLAQUENIL [Concomitant]
     Indication: DRUG USE FOR UNKNOWN INDICATION

REACTIONS (1)
  - CYTOLYTIC HEPATITIS [None]
